FAERS Safety Report 8225961 (Version 2)
Quarter: 2012Q4

REPORT INFORMATION
  Report Type: 
  Country: US (occurrence: US)
  Receive Date: 20111103
  Receipt Date: 20121015
  Transmission Date: 20130627
  Serious: No
  Sender: FDA-Public Use
  Company Number: US-BRISTOL-MYERS SQUIBB COMPANY-15965809

PATIENT

DRUGS (1)
  1. KENALOG-40 INJ [Suspect]
     Dosage: epidural

REACTIONS (2)
  - Incorrect route of drug administration [Unknown]
  - Incorrect storage of drug [Unknown]
